FAERS Safety Report 8387788-2 (Version None)
Quarter: 2012Q2

REPORT INFORMATION
  Report Type: 
  Country: None (occurrence: None)
  Receive Date: 20120525
  Receipt Date: 20120515
  Transmission Date: 20120825
  Serious: Yes (Disabling)
  Sender: FDA-Public Use
  Company Number: FR-GLAXOSMITHKLINE-B0801498A

PATIENT
  Sex: Male

DRUGS (11)
  1. VINCRISTINE [Suspect]
     Indication: T-CELL TYPE ACUTE LEUKAEMIA
     Dosage: 2MG CYCLIC
     Route: 042
     Dates: start: 20111020, end: 20111110
  2. PHENOXYMETHYL PENICILLIN [Suspect]
     Indication: PRODUCT USED FOR UNKNOWN INDICATION
     Dosage: 3IU6 PER DAY
     Route: 048
     Dates: start: 20111118, end: 20111207
  3. NEXIUM [Suspect]
     Indication: PRODUCT USED FOR UNKNOWN INDICATION
     Route: 048
     Dates: start: 20111017, end: 20111207
  4. METHOTREXATE [Concomitant]
     Dates: start: 20111026
  5. VFEND [Suspect]
     Indication: PRODUCT USED FOR UNKNOWN INDICATION
     Route: 042
     Dates: start: 20111017, end: 20111207
  6. DEXAMETHASONE [Suspect]
     Indication: PRODUCT USED FOR UNKNOWN INDICATION
     Route: 048
     Dates: start: 20111020, end: 20111027
  7. VALACYCLOVIR HYDROCHLORIDE [Suspect]
     Indication: PRODUCT USED FOR UNKNOWN INDICATION
     Dosage: 1G PER DAY
     Route: 048
     Dates: start: 20111013, end: 20111207
  8. KIDROLASE [Suspect]
     Indication: T-CELL TYPE ACUTE LEUKAEMIA
     Dosage: 10IU3 CYCLIC
     Route: 042
     Dates: start: 20111024, end: 20111116
  9. CERUBIDINE [Suspect]
     Indication: T-CELL TYPE ACUTE LEUKAEMIA
     Dosage: 60MG CYCLIC
     Route: 042
     Dates: start: 20111020, end: 20111110
  10. CYCLOPHOSPHAMIDE [Concomitant]
     Dates: start: 20111130
  11. CYTARABINE [Concomitant]
     Dates: start: 20111130

REACTIONS (1)
  - TOXIC OPTIC NEUROPATHY [None]
